FAERS Safety Report 25968966 (Version 1)
Quarter: 2025Q4

REPORT INFORMATION
  Report Type: Spontaneous
  Country: US (occurrence: US)
  Receive Date: 20251028
  Receipt Date: 20251028
  Transmission Date: 20260117
  Serious: Yes (Life-Threatening, Other)
  Sender: ZYDUS PHARM
  Company Number: US-CADILA HEALTHCARE LIMITED-US-ZYDUS-129624

PATIENT

DRUGS (3)
  1. VIGABATRIN [Suspect]
     Active Substance: VIGABATRIN
     Indication: Infantile spasms
     Dosage: 48 MILLIGRAM/KILOGRAM, QD, DIVIDED TWICE DAILY
     Route: 065
  2. VIGABATRIN [Suspect]
     Active Substance: VIGABATRIN
     Dosage: 48 MILLIGRAM/KILOGRAM, DIVIDED THREE TIMES DAILY
     Route: 065
  3. VIGABATRIN [Suspect]
     Active Substance: VIGABATRIN
     Dosage: 108 MILLIGRAM/KILOGRAM, QD, DIVIDED 3 TIMES DAILY
     Route: 065

REACTIONS (5)
  - Magnetic resonance imaging head abnormal [Recovering/Resolving]
  - Respiratory failure [Unknown]
  - Hypotonia [Recovering/Resolving]
  - Hydrocephalus [Recovering/Resolving]
  - Lissencephaly [Recovering/Resolving]
